FAERS Safety Report 15325636 (Version 1)
Quarter: 2018Q3

REPORT INFORMATION
  Report Type: Spontaneous
  Country: US (occurrence: US)
  Receive Date: 20180822
  Receipt Date: 20180822
  Transmission Date: 20181010
  Serious: Yes (Other)
  Sender: FDA-Public Use
  Company Number: None

PATIENT
  Age: 60 Year
  Sex: Female
  Weight: 52.65 kg

DRUGS (5)
  1. WRIST SPLINTS [Concomitant]
  2. REACHER [Concomitant]
  3. WHEELCHAIR [Concomitant]
     Active Substance: DEVICE
  4. RECLAST [Suspect]
     Active Substance: ZOLEDRONIC ACID
     Indication: OSTEOPOROSIS
     Dosage: ?          QUANTITY:1 UNK ? UNKNOWN;OTHER FREQUENCY:UNKNOWN;?
     Route: 042
     Dates: end: 20180726
  5. WALKER SEAT [Concomitant]
     Active Substance: DEVICE

REACTIONS (9)
  - Fatigue [None]
  - Nausea [None]
  - Vomiting [None]
  - Myalgia [None]
  - Migraine [None]
  - Pain [None]
  - Chills [None]
  - Pyrexia [None]
  - Gait disturbance [None]

NARRATIVE: CASE EVENT DATE: 20180728
